FAERS Safety Report 17176611 (Version 2)
Quarter: 2020Q1

REPORT INFORMATION
  Report Type: Spontaneous
  Country: US (occurrence: US)
  Receive Date: 20191219
  Receipt Date: 20200102
  Transmission Date: 20200409
  Serious: Yes (Other)
  Sender: FDA-Public Use
  Company Number: US-AKORN PHARMACEUTICALS-2019AKN02502

PATIENT
  Age: 17 Year
  Sex: Male
  Weight: 78.91 kg

DRUGS (1)
  1. MYORISAN [Suspect]
     Active Substance: ISOTRETINOIN
     Indication: ACNE CONGLOBATA
     Dosage: 30 MG, 2X/DAY
     Route: 048
     Dates: start: 20191101, end: 201911

REACTIONS (3)
  - Mood altered [Unknown]
  - Anhedonia [Unknown]
  - Thinking abnormal [Unknown]

NARRATIVE: CASE EVENT DATE: 201911
